FAERS Safety Report 25387424 (Version 1)
Quarter: 2025Q2

REPORT INFORMATION
  Report Type: Report from Study
  Country: US (occurrence: US)
  Receive Date: 20250602
  Receipt Date: 20250602
  Transmission Date: 20250717
  Serious: Yes (Hospitalization)
  Sender: ABBVIE
  Company Number: US-ABBVIE-6302572

PATIENT
  Sex: Male

DRUGS (1)
  1. SKYRIZI [Suspect]
     Active Substance: RISANKIZUMAB-RZAA
     Indication: Crohn^s disease
     Route: 058
     Dates: start: 20241107

REACTIONS (5)
  - Internal haemorrhage [Recovering/Resolving]
  - Fall [Recovering/Resolving]
  - Concussion [Recovering/Resolving]
  - Skull fracture [Recovering/Resolving]
  - Skin abrasion [Recovering/Resolving]
